FAERS Safety Report 22643323 (Version 1)
Quarter: 2023Q2

REPORT INFORMATION
  Report Type: Spontaneous
  Country: CN (occurrence: CN)
  Receive Date: 20230627
  Receipt Date: 20230627
  Transmission Date: 20230721
  Serious: Yes (Death, Life-Threatening, Hospitalization, Other)
  Sender: FDA-Public Use
  Company Number: CN-ALKEM LABORATORIES LIMITED-CN-ALKEM-2023-06491

PATIENT
  Age: 19 Year
  Sex: Male

DRUGS (1)
  1. COLCHICINE [Suspect]
     Active Substance: COLCHICINE
     Indication: Suicide attempt
     Dosage: 160 DOSAGE FORM (TABLETS) TOTAL INGESTED DOSE (80 MG)
     Route: 048
     Dates: start: 20200106

REACTIONS (9)
  - Cardiac arrest [Fatal]
  - Multiple organ dysfunction syndrome [Fatal]
  - Acute respiratory distress syndrome [Fatal]
  - Acute respiratory failure [Fatal]
  - Cardiac failure acute [Fatal]
  - Shock [Fatal]
  - Toxicity to various agents [Fatal]
  - Intentional overdose [Fatal]
  - Drug level above therapeutic [Fatal]
